FAERS Safety Report 22229200 (Version 1)
Quarter: 2023Q2

REPORT INFORMATION
  Report Type: Spontaneous
  Country: FR (occurrence: FR)
  Receive Date: 20230419
  Receipt Date: 20230419
  Transmission Date: 20230721
  Serious: Yes (Other)
  Sender: FDA-Public Use
  Company Number: FR-SA-2023SA106872

PATIENT
  Age: 78 Year
  Sex: Female

DRUGS (2)
  1. VALPROIC ACID [Suspect]
     Active Substance: VALPROIC ACID
     Indication: Depression
     Dosage: ONE TABLET EVERY EVENING, ONE OR HALF IN MORNING
     Route: 048
  2. LITHIUM CARBONATE [Concomitant]
     Active Substance: LITHIUM CARBONATE
     Indication: Product used for unknown indication
     Dosage: UNK
     Route: 065

REACTIONS (18)
  - Compression fracture [Unknown]
  - Chronic obstructive pulmonary disease [Unknown]
  - Hearing aid user [Unknown]
  - Sleep disorder [Unknown]
  - Gingivitis [Unknown]
  - Illness anxiety disorder [Unknown]
  - Oedema [Unknown]
  - Fatigue [Unknown]
  - Restlessness [Unknown]
  - Psychotic disorder [Unknown]
  - Memory impairment [Unknown]
  - Osteoporosis [Unknown]
  - Urinary incontinence [Unknown]
  - Red blood cell count decreased [Unknown]
  - White blood cell count decreased [Not Recovered/Not Resolved]
  - Wrong technique in product usage process [Unknown]
  - Product use in unapproved indication [Unknown]
  - Intentional product misuse [Unknown]
